FAERS Safety Report 4938304-6 (Version None)
Quarter: 2006Q1

REPORT INFORMATION
  Report Type: 
  Country: None (occurrence: None)
  Receive Date: 20060309
  Receipt Date: 20060111
  Transmission Date: 20060701
  Serious: Yes (Disabling)
  Sender: FDA-Public Use
  Company Number: BE-GLAXOSMITHKLINE-B0406323A

PATIENT
  Age: 32 Year
  Sex: Male
  Weight: 80 kg

DRUGS (1)
  1. SEROXAT [Suspect]
     Indication: SOCIAL PHOBIA
     Dosage: 20MG UNKNOWN
     Route: 048
     Dates: start: 19910101

REACTIONS (3)
  - SPERMATOGENESIS ABNORMAL [None]
  - SPERMATOZOA ABNORMAL [None]
  - SPERMATOZOA PROGRESSIVE MOTILITY DECREASED [None]
